FAERS Safety Report 14150841 (Version 1)
Quarter: 2017Q4

REPORT INFORMATION
  Report Type: Report from Study
  Country: MX (occurrence: MX)
  Receive Date: 20171102
  Receipt Date: 20171102
  Transmission Date: 20180321
  Serious: Yes (Other)
  Sender: FDA-Public Use
  Company Number: MX-ROCHE-2017800

PATIENT
  Age: 38 Year
  Sex: Female

DRUGS (7)
  1. HERCEPTIN [Suspect]
     Active Substance: TRASTUZUMAB
     Indication: HER-2 POSITIVE BREAST CANCER
     Dosage: 18 CYCLES (NEOADJUVANT:4-ADJUVANT:14)-ONGOING
     Route: 058
  2. DOCETAXEL. [Concomitant]
     Active Substance: DOCETAXEL
     Indication: BREAST CANCER
     Dosage: 4 CYCLES
     Route: 065
  3. DEXAMETHASONE. [Concomitant]
     Active Substance: DEXAMETHASONE
     Dosage: NO THERAPY DETAILS WERE PROVIDED
     Route: 065
  4. APREPITANT. [Concomitant]
     Active Substance: APREPITANT
     Indication: VOMITING
  5. PALONOSETRON. [Concomitant]
     Active Substance: PALONOSETRON HYDROCHLORIDE
     Indication: VOMITING
  6. APREPITANT. [Concomitant]
     Active Substance: APREPITANT
     Indication: NAUSEA
     Dosage: NO THERAPY DETAILS WERE PROVIDED
     Route: 065
  7. PALONOSETRON. [Concomitant]
     Active Substance: PALONOSETRON HYDROCHLORIDE
     Indication: NAUSEA
     Dosage: NO THERAPY DETAILS WERE PROVIDED
     Route: 065

REACTIONS (3)
  - Palmar-plantar erythrodysaesthesia syndrome [Unknown]
  - Breast ulceration [Unknown]
  - Pain [Unknown]
